FAERS Safety Report 24584197 (Version 1)
Quarter: 2024Q4

REPORT INFORMATION
  Report Type: Spontaneous
  Country: US (occurrence: US)
  Receive Date: 20241106
  Receipt Date: 20241106
  Transmission Date: 20250114
  Serious: Yes (Hospitalization)
  Sender: MYLAN
  Company Number: US-MYLANLABS-2024M1099298

PATIENT
  Age: 24 Year
  Sex: Female

DRUGS (3)
  1. SULFAMETHOXAZOLE\TRIMETHOPRIM [Suspect]
     Active Substance: SULFAMETHOXAZOLE\TRIMETHOPRIM
     Indication: Cellulitis orbital
     Dosage: UNK
     Route: 065
  2. AMOXICILLIN\CLAVULANIC ACID [Suspect]
     Active Substance: AMOXICILLIN\CLAVULANIC ACID
     Indication: Cellulitis orbital
     Dosage: UNK
     Route: 048
  3. OFLOXACIN [Suspect]
     Active Substance: OFLOXACIN
     Indication: Cellulitis orbital
     Dosage: UNK
     Route: 061

REACTIONS (1)
  - Drug ineffective [Unknown]
